FAERS Safety Report 5669299-8 (Version None)
Quarter: 2008Q1

REPORT INFORMATION
  Report Type: 
  Country: None (occurrence: None)
  Receive Date: 20080317
  Receipt Date: 20080306
  Transmission Date: 20080703
  Serious: Yes (Hospitalization, Other)
  Sender: FDA-Public Use
  Company Number: PHHY2008JP01432

PATIENT
  Age: 16 Year
  Sex: Male

DRUGS (4)
  1. MYCOPHENOLATE MOFETIL [Concomitant]
     Indication: RENAL TRANSPLANT
  2. PREDNISOLONE [Concomitant]
     Indication: RENAL TRANSPLANT
  3. SIMULECT [Suspect]
     Indication: RENAL TRANSPLANT
     Dosage: 20 MG, UNK
  4. NEORAL [Suspect]
     Indication: RENAL TRANSPLANT
     Dosage: 50 MG/DAY
     Route: 065
     Dates: start: 20070411

REACTIONS (9)
  - BIOPSY KIDNEY ABNORMAL [None]
  - CYST DRAINAGE [None]
  - DISEASE RECURRENCE [None]
  - FOCAL SEGMENTAL GLOMERULOSCLEROSIS [None]
  - LYMPHOCELE [None]
  - NEPHROPATHY TOXIC [None]
  - PROTEINURIA [None]
  - RENAL IMPAIRMENT [None]
  - URETERIC OBSTRUCTION [None]
